FAERS Safety Report 16939500 (Version 1)
Quarter: 2019Q4

REPORT INFORMATION
  Report Type: Spontaneous
  Country: US (occurrence: US)
  Receive Date: 20191021
  Receipt Date: 20191021
  Transmission Date: 20200122
  Serious: Yes (Death, Hospitalization, Other)
  Sender: FDA-Public Use
  Company Number: US-ACTELION-A-CH2019-196816

PATIENT
  Age: 32 Year
  Sex: Female

DRUGS (5)
  1. OPSUMIT [Suspect]
     Active Substance: MACITENTAN
     Indication: PULMONARY ARTERIAL HYPERTENSION
     Route: 048
  2. TADALAFIL. [Concomitant]
     Active Substance: TADALAFIL
  3. EPOPROSTENOL SODIUM. [Suspect]
     Active Substance: EPOPROSTENOL SODIUM
     Indication: PULMONARY ARTERIAL HYPERTENSION
     Route: 042
  4. TREPROSTINIL. [Concomitant]
     Active Substance: TREPROSTINIL
     Route: 058
  5. OXYGEN. [Concomitant]
     Active Substance: OXYGEN

REACTIONS (9)
  - Respiratory failure [Fatal]
  - Pulmonary arterial hypertension [Unknown]
  - Haematopoietic stem cell mobilisation [Unknown]
  - Biopsy bone marrow [Unknown]
  - Right ventricular failure [Unknown]
  - Headache [Unknown]
  - Pneumonia [Unknown]
  - Condition aggravated [Unknown]
  - Thrombocytopenia [Unknown]
